FAERS Safety Report 9110218 (Version 2)
Quarter: 2013Q2

REPORT INFORMATION
  Report Type: Report from Study
  Country: CH (occurrence: CH)
  Receive Date: 20130222
  Receipt Date: 20130405
  Transmission Date: 20140414
  Serious: Yes (Life-Threatening, Other)
  Sender: FDA-Public Use
  Company Number: CH-CELGENEUS-151-21880-13010612

PATIENT
  Age: 78 Year
  Sex: Male
  Weight: 94 kg

DRUGS (6)
  1. REVLIMID [Suspect]
     Indication: ACUTE MYELOID LEUKAEMIA
     Route: 048
     Dates: start: 20121227, end: 20130107
  2. DAUNOMYCIN [Suspect]
     Indication: ACUTE MYELOID LEUKAEMIA
     Route: 041
     Dates: start: 20121227
  3. CYTARABINE [Suspect]
     Indication: ACUTE MYELOID LEUKAEMIA
     Route: 041
     Dates: start: 20121227
  4. CYTARABINE [Suspect]
     Route: 041
     Dates: start: 20130205, end: 20130210
  5. ANTIBIOTICS [Concomitant]
     Indication: BRONCHOPNEUMONIA
     Route: 065
     Dates: start: 201212
  6. ANTIBIOTICS [Concomitant]
     Indication: ORGANISING PNEUMONIA
     Route: 065
     Dates: start: 201301, end: 20130124

REACTIONS (2)
  - Organising pneumonia [Not Recovered/Not Resolved]
  - Dysarthria [Recovered/Resolved]
